FAERS Safety Report 5700514-8 (Version None)
Quarter: 2008Q2

REPORT INFORMATION
  Report Type: 
  Country: None (occurrence: None)
  Receive Date: 20080408
  Receipt Date: 20080408
  Transmission Date: 20081010
  Serious: Yes (Other)
  Sender: FDA-Public Use
  Company Number: None

PATIENT
  Sex: Female
  Weight: 86.1834 kg

DRUGS (1)
  1. LEXAPRO [Suspect]
     Indication: DEPRESSION
     Dosage: 20MG  ONCE A DAY PO
     Route: 048
     Dates: start: 20080225, end: 20080407

REACTIONS (2)
  - ANORGASMIA [None]
  - LIBIDO DECREASED [None]
